FAERS Safety Report 4653655-0 (Version None)
Quarter: 2005Q2

REPORT INFORMATION
  Report Type: 
  Country: None (occurrence: None)
  Receive Date: 20050505
  Receipt Date: 20050422
  Transmission Date: 20051028
  Serious: Yes (Hospitalization)
  Sender: FDA-Public Use
  Company Number: FR-JNJFOC-20050400764

PATIENT
  Age: 48 Year
  Sex: Female

DRUGS (8)
  1. IMODIUM [Suspect]
     Indication: DIARRHOEA
     Dosage: 6 - 10 DOSES PER DAY
     Route: 049
     Dates: end: 20050314
  2. SMECTA [Concomitant]
  3. SMECTA [Concomitant]
  4. SMECTA [Concomitant]
  5. SMECTA [Concomitant]
  6. XANAX [Concomitant]
  7. LUTERAN [Concomitant]
  8. DEROXAT [Concomitant]

REACTIONS (11)
  - ACUTE RESPIRATORY DISTRESS SYNDROME [None]
  - CHEST PAIN [None]
  - CHEST WALL PAIN [None]
  - CONFUSIONAL STATE [None]
  - DYSPNOEA [None]
  - INFECTION [None]
  - PERICARDIAL EFFUSION [None]
  - PLEURAL EFFUSION [None]
  - RESPIRATORY DISTRESS [None]
  - SINUS TACHYCARDIA [None]
  - TACHYPNOEA [None]
